FAERS Safety Report 4592537-X (Version None)
Quarter: 2005Q1

REPORT INFORMATION
  Report Type: 
  Country: None (occurrence: None)
  Receive Date: 20050228
  Receipt Date: 20050216
  Transmission Date: 20050727
  Serious: Yes (Death)
  Sender: FDA-Public Use
  Company Number: JP-JNJFOC-20041202096

PATIENT
  Sex: Male

DRUGS (13)
  1. DUROTEP [Suspect]
     Indication: CANCER PAIN
     Route: 062
  2. MORPHINE HYDROCHLORIDE [Suspect]
     Route: 042
  3. MORPHINE HYDROCHLORIDE [Suspect]
     Route: 042
  4. MORPHINE HYDROCHLORIDE [Suspect]
     Route: 042
  5. MORPHINE HYDROCHLORIDE [Suspect]
     Route: 042
  6. MORPHINE HYDROCHLORIDE [Suspect]
     Indication: CANCER PAIN
     Route: 042
  7. SODIUM PICOSULFATE [Concomitant]
     Indication: CONSTIPATION
     Dosage: 2.5 - 10 MG/DAY
     Route: 049
  8. MAGNESIUM OXIDE [Concomitant]
     Indication: CONSTIPATION
     Route: 049
  9. LANSOPRAZOLE [Concomitant]
     Route: 049
  10. FLUNITRAZEPAM [Concomitant]
     Route: 049
  11. ZOLPIDEM TARTRATE [Concomitant]
     Route: 049
  12. BROMAZEPAM [Concomitant]
     Indication: SEDATIVE THERAPY
     Route: 054
  13. HALOPERIDOL [Concomitant]
     Indication: DELIRIUM
     Route: 058

REACTIONS (5)
  - CONSTIPATION [None]
  - LUNG NEOPLASM MALIGNANT [None]
  - MALIGNANT NEOPLASM PROGRESSION [None]
  - RESPIRATORY FAILURE [None]
  - SOMNOLENCE [None]
